FAERS Safety Report 15893250 (Version 1)
Quarter: 2019Q1

REPORT INFORMATION
  Report Type: Report from Study
  Country: US (occurrence: US)
  Receive Date: 20190130
  Receipt Date: 20190130
  Transmission Date: 20190417
  Serious: No
  Sender: FDA-Public Use
  Company Number: US-EXELIXIS-CABO-18016396

PATIENT
  Sex: Male

DRUGS (5)
  1. CABOMETYX [Suspect]
     Active Substance: CABOZANTINIB S-MALATE
     Indication: RENAL CANCER
     Dosage: 60 MG, QD
     Route: 048
     Dates: start: 20180303, end: 2018
  2. SYNTHROID [Concomitant]
     Active Substance: LEVOTHYROXINE SODIUM
  3. CABOMETYX [Suspect]
     Active Substance: CABOZANTINIB S-MALATE
     Dosage: 40 MG, QD (WHOLE WITH WATER ON AN EMPTY STOMACH 1 HOUR BEFORE OR 2 HOURS AFTER FOOD)
     Route: 048
     Dates: start: 2018
  4. TEMAZEPAM. [Concomitant]
     Active Substance: TEMAZEPAM
  5. METOPROLOL. [Concomitant]
     Active Substance: METOPROLOL

REACTIONS (3)
  - Diarrhoea [Not Recovered/Not Resolved]
  - Fatigue [Not Recovered/Not Resolved]
  - Skin exfoliation [Not Recovered/Not Resolved]

NARRATIVE: CASE EVENT DATE: 2018
